FAERS Safety Report 8570566-9 (Version None)
Quarter: 2012Q3

REPORT INFORMATION
  Report Type: 
  Country: None (occurrence: None)
  Receive Date: 20120804
  Receipt Date: 20120720
  Transmission Date: 20120928
  Serious: No
  Sender: FDA-Public Use
  Company Number: US-009507513-2012SP034572

PATIENT

DRUGS (11)
  1. RESTASIS [Concomitant]
  2. RIBAVIRIN [Suspect]
  3. LEVOXYL [Concomitant]
  4. PEGASYS [Suspect]
  5. SPIRIVA [Concomitant]
  6. BENADRYL [Concomitant]
  7. VICTRELIS [Suspect]
     Indication: HEPATITIS C
     Dosage: 800 MG, TID
     Route: 048
     Dates: start: 20120407
  8. GEODON [Concomitant]
  9. MK-9384 [Concomitant]
  10. NORCO [Concomitant]
  11. AMBIEN [Concomitant]

REACTIONS (1)
  - DYSGEUSIA [None]
